FAERS Safety Report 23732741 (Version 1)
Quarter: 2024Q2

REPORT INFORMATION
  Report Type: Spontaneous
  Country: IT (occurrence: IT)
  Receive Date: 20240411
  Receipt Date: 20240411
  Transmission Date: 20240717
  Serious: Yes (Other)
  Sender: FDA-Public Use
  Company Number: None

PATIENT
  Age: 60 Year
  Sex: Female

DRUGS (1)
  1. IBUPROFEN [Suspect]
     Active Substance: IBUPROFEN
     Indication: Oropharyngeal pain
     Dosage: 600 MILLIGRAM, BID
     Route: 048
     Dates: start: 20240129, end: 20240131

REACTIONS (2)
  - Rectal haemorrhage [Recovering/Resolving]
  - Malaise [Recovered/Resolved]

NARRATIVE: CASE EVENT DATE: 20240131
